FAERS Safety Report 11553870 (Version 2)
Quarter: 2015Q3

REPORT INFORMATION
  Report Type: Spontaneous
  Country: JP (occurrence: JP)
  Receive Date: 20150925
  Receipt Date: 20150928
  Transmission Date: 20151125
  Serious: Yes (Hospitalization)
  Sender: FDA-Public Use
  Company Number: JP-PFIZER INC-2015314476

PATIENT
  Age: 89 Year
  Sex: Male

DRUGS (3)
  1. LYRICA [Suspect]
     Active Substance: PREGABALIN
     Indication: NEURALGIA
     Dosage: 150 MG, 2X/DAY
     Route: 048
  2. LYRICA [Suspect]
     Active Substance: PREGABALIN
     Dosage: MISTAKENLY RECEIVED PREGABALIN AT 300 MG AT NIGHT
     Route: 048
  3. BIOFERMIN [Concomitant]
     Active Substance: BACILLUS SUBTILIS\LACTOBACILLUS ACIDOPHILUS\STREPTOCOCCUS FAECAIS
     Indication: CONSTIPATION
     Dosage: UNK

REACTIONS (5)
  - Speech disorder [Recovered/Resolved]
  - Hypersomnia [Unknown]
  - Delirium [Recovered/Resolved]
  - Extra dose administered [Unknown]
  - Abnormal behaviour [Recovered/Resolved]
